FAERS Safety Report 7831903-3 (Version None)
Quarter: 2011Q4

REPORT INFORMATION
  Report Type: 
  Country: None (occurrence: None)
  Receive Date: 20111021
  Receipt Date: 20111012
  Transmission Date: 20120403
  Serious: Yes (Hospitalization)
  Sender: FDA-Public Use
  Company Number: US-ASTRAZENECA-2010SE33015

PATIENT
  Age: 64 Year
  Sex: Female

DRUGS (6)
  1. CRESTOR [Suspect]
     Route: 048
  2. CELEXA [Concomitant]
     Dates: start: 20060505
  3. EVISTA [Concomitant]
     Dates: start: 20060505
  4. NEXIUM [Suspect]
     Route: 048
     Dates: start: 20060505
  5. ATENOLOL [Concomitant]
     Dates: start: 20060505
  6. FIORINAL [Concomitant]
     Dosage: 1-2 TABLETS EVERY 3HOURS
     Route: 065

REACTIONS (5)
  - INJURY ASSOCIATED WITH DEVICE [None]
  - MIGRAINE [None]
  - STAPHYLOCOCCAL INFECTION [None]
  - CELLULITIS [None]
  - HYPERTENSION [None]
